FAERS Safety Report 4462891-8 (Version None)
Quarter: 2004Q3

REPORT INFORMATION
  Report Type: 
  Country: None (occurrence: None)
  Receive Date: 20040927
  Receipt Date: 20040909
  Transmission Date: 20050211
  Serious: Yes (Other)
  Sender: FDA-Public Use
  Company Number: 2004-0007355

PATIENT
  Age: 35 Year
  Sex: Male
  Weight: 85 kg

DRUGS (4)
  1. VIREAD [Suspect]
     Indication: HIV INFECTION
     Dosage: 300 MG, 1 IN 1 D, ORAL
     Route: 048
     Dates: start: 20040129, end: 20040505
  2. 3TC (LAMIVUDINE) [Concomitant]
  3. KALETRA [Concomitant]
  4. PENTAMIDINE [Concomitant]

REACTIONS (5)
  - NEPHRITIS INTERSTITIAL [None]
  - NEPHROLITHIASIS [None]
  - OBSTRUCTION [None]
  - RENAL PAIN [None]
  - VESICOURETERIC REFLUX [None]
